FAERS Safety Report 25377546 (Version 1)
Quarter: 2025Q2

REPORT INFORMATION
  Report Type: Report from Study
  Country: CA (occurrence: CA)
  Receive Date: 20250530
  Receipt Date: 20250530
  Transmission Date: 20250716
  Serious: Yes (Other)
  Sender: ABBVIE
  Company Number: CA-ABBVIE-6305492

PATIENT
  Age: 72 Year
  Sex: Female

DRUGS (1)
  1. SKYRIZI [Suspect]
     Active Substance: RISANKIZUMAB-RZAA
     Indication: Crohn^s disease
     Dosage: INJECTION SITE: ABDOMEN - RIGHT
     Route: 058
     Dates: start: 20240209

REACTIONS (2)
  - Knee arthroplasty [Unknown]
  - Joint swelling [Unknown]

NARRATIVE: CASE EVENT DATE: 20250502
